FAERS Safety Report 4683212-1 (Version None)
Quarter: 2005Q2

REPORT INFORMATION
  Report Type: 
  Country: None (occurrence: None)
  Receive Date: 20050602
  Receipt Date: 20050128
  Transmission Date: 20051028
  Serious: No
  Sender: FDA-Public Use
  Company Number: USA050189487

PATIENT
  Age: 74 Year
  Sex: Female

DRUGS (11)
  1. PROZAC [Suspect]
     Indication: DEPRESSION
     Dosage: 20 MG DAY
     Dates: start: 19870101, end: 20050107
  2. CYMBALTA [Suspect]
     Indication: DEPRESSION
     Dosage: 60 MG DAY
     Dates: start: 20050107
  3. CYMBALTA [Suspect]
     Indication: NEUROPATHY PERIPHERAL
     Dosage: 60 MG DAY
     Dates: start: 20050107
  4. LIPITOR [Concomitant]
  5. GLUCOTROL XL [Concomitant]
  6. AVANDIA [Concomitant]
  7. NORVASC [Concomitant]
  8. DYAZIDE [Concomitant]
  9. MOBIC [Concomitant]
  10. COUMADIN [Concomitant]
  11. COSOPT [Concomitant]

REACTIONS (4)
  - APATHY [None]
  - DEPRESSION [None]
  - FALL [None]
  - FEELING ABNORMAL [None]
